FAERS Safety Report 7297973-9 (Version None)
Quarter: 2011Q1

REPORT INFORMATION
  Report Type: 
  Country: None (occurrence: None)
  Receive Date: 20110217
  Receipt Date: 20110214
  Transmission Date: 20110831
  Serious: Yes (Hospitalization, Other)
  Sender: FDA-Public Use
  Company Number: DE-JNJFOC-20110203798

PATIENT
  Age: 27 Year
  Sex: Female

DRUGS (2)
  1. TAVOR [Suspect]
     Indication: PRODUCT USED FOR UNKNOWN INDICATION
     Route: 065
  2. HALDOL [Suspect]
     Indication: PRODUCT USED FOR UNKNOWN INDICATION
     Route: 030

REACTIONS (4)
  - HOSPITALISATION [None]
  - DRUG EXPOSURE DURING PREGNANCY [None]
  - EXTRAPYRAMIDAL DISORDER [None]
  - CATATONIA [None]
